FAERS Safety Report 6674518-5 (Version None)
Quarter: 2010Q2

REPORT INFORMATION
  Report Type: 
  Country: None (occurrence: None)
  Receive Date: 20100409
  Receipt Date: 20100330
  Transmission Date: 20101027
  Serious: Yes (Other)
  Sender: FDA-Public Use
  Company Number: RU-PFIZER INC-2010040775

PATIENT
  Age: 57 Year
  Sex: Female

DRUGS (3)
  1. CADUET [Suspect]
     Indication: HYPERTENSION
     Dosage: 10 MG/10 MG, 1X/DAY
     Route: 048
     Dates: start: 20100315, end: 20100317
  2. CADUET [Suspect]
     Dosage: 5 MG/10 MG, 1X/DAY
     Route: 048
     Dates: start: 20100201, end: 20100315
  3. KLIMADYNON [Concomitant]
     Dosage: UNK

REACTIONS (6)
  - ANGINA PECTORIS [None]
  - ASTHENIA [None]
  - DEPRESSED MOOD [None]
  - DIZZINESS [None]
  - EXTRASYSTOLES [None]
  - TACHYCARDIA [None]
